FAERS Safety Report 6356877-6 (Version None)
Quarter: 2009Q3

REPORT INFORMATION
  Report Type: 
  Country: None (occurrence: None)
  Receive Date: 20090915
  Receipt Date: 20090907
  Transmission Date: 20100115
  Serious: Yes (Hospitalization)
  Sender: FDA-Public Use
  Company Number: IL-ABBOTT-09P-082-0595465-00

PATIENT
  Age: 53 Year
  Sex: Female

DRUGS (11)
  1. HUMIRA [Suspect]
     Indication: ARTHRITIS
     Route: 058
     Dates: start: 20071015
  2. HUMIRA [Suspect]
     Indication: CROHN'S DISEASE
  3. METHOTREXATE [Concomitant]
     Indication: ARTHRITIS
     Route: 048
  4. METHOTREXATE [Concomitant]
     Indication: CROHN'S DISEASE
  5. SALAZOPYRINE [Concomitant]
     Indication: ARTHRITIS
     Route: 048
  6. SALAZOPYRINE [Concomitant]
     Indication: CROHN'S DISEASE
  7. ALLOPURINOL [Concomitant]
     Indication: ARTHRITIS
     Route: 048
  8. ALLOPURINOL [Concomitant]
     Indication: CROHN'S DISEASE
  9. LOVAZA [Concomitant]
     Indication: DRUG USE FOR UNKNOWN INDICATION
  10. VITAMINS [Concomitant]
     Indication: DRUG USE FOR UNKNOWN INDICATION
  11. THEOTARD [Concomitant]
     Indication: DRUG USE FOR UNKNOWN INDICATION
     Route: 048

REACTIONS (2)
  - GRAND MAL CONVULSION [None]
  - MENINGIOMA [None]
